FAERS Safety Report 6516457-6 (Version None)
Quarter: 2009Q4

REPORT INFORMATION
  Report Type: 
  Country: None (occurrence: None)
  Receive Date: 20091223
  Receipt Date: 20091215
  Transmission Date: 20100525
  Serious: Yes (Hospitalization)
  Sender: FDA-Public Use
  Company Number: FR-TEVA-218416ISR

PATIENT
  Sex: Female

DRUGS (11)
  1. CARBOPLATIN [Suspect]
     Indication: PANCREATIC CARCINOMA
     Route: 042
     Dates: start: 20090309, end: 20090309
  2. FLUOROURACIL [Suspect]
     Indication: PANCREATIC CARCINOMA
     Route: 042
     Dates: start: 20090309, end: 20090311
  3. ESOMEPRAZOLE MAGNESIUM [Concomitant]
  4. ENOXAPARIN SODIUM [Concomitant]
  5. MACROGOL [Concomitant]
  6. CLOMIPRAMINE HYDROCHLORIDE [Concomitant]
  7. ZOLPIDEM [Concomitant]
  8. DOMPERIDONE [Concomitant]
  9. CLOPIDOGREL [Concomitant]
  10. ACEBUTOLOL HYDROCHLORIDE [Concomitant]
  11. FENTANYL-100 [Concomitant]
     Route: 062

REACTIONS (1)
  - MYOCARDIAL INFARCTION [None]
